FAERS Safety Report 5451316-1 (Version None)
Quarter: 2007Q3

REPORT INFORMATION
  Report Type: 
  Country: None (occurrence: None)
  Receive Date: 20070913
  Receipt Date: 20070820
  Transmission Date: 20080115
  Serious: No
  Sender: FDA-Public Use
  Company Number: US-JNJFOC-20070804485

PATIENT
  Age: 54 Year
  Sex: Female
  Weight: 80.74 kg

DRUGS (10)
  1. INVEGA [Suspect]
     Indication: DRUG THERAPY
     Route: 048
  2. CYMBALTA [Concomitant]
     Indication: DEPRESSION
  3. GLUCOVANCE [Concomitant]
     Indication: DIABETES MELLITUS
  4. JANUVIA [Concomitant]
     Indication: DIABETES MELLITUS
  5. HYDROCHLOROTHIAZIDE [Concomitant]
     Indication: HYPERTENSION
  6. LOSINOPRIL [Concomitant]
     Indication: RENAL DISORDER
  7. LEVOXYL [Concomitant]
     Indication: THYROID DISORDER
  8. LAMICTAL [Concomitant]
     Indication: ANTIDEPRESSANT THERAPY
     Route: 048
  9. TRAZODONE HCL [Concomitant]
     Indication: SLEEP DISORDER
  10. PRILOSEC [Concomitant]
     Indication: GASTROOESOPHAGEAL REFLUX DISEASE

REACTIONS (1)
  - DIABETES MELLITUS INADEQUATE CONTROL [None]
